FAERS Safety Report 5568695-7 (Version None)
Quarter: 2007Q4

REPORT INFORMATION
  Report Type: 
  Country: None (occurrence: None)
  Receive Date: 20071220
  Receipt Date: 20070521
  Transmission Date: 20080405
  Serious: No
  Sender: FDA-Public Use
  Company Number: A0625478A

PATIENT
  Age: 59 Year
  Sex: Male
  Weight: 79.5 kg

DRUGS (3)
  1. AVODART [Suspect]
     Indication: DRUG USE FOR UNKNOWN INDICATION
     Route: 048
     Dates: start: 20060413
  2. DOXAZOSIN MESYLATE [Concomitant]
     Dosage: 16MG PER DAY
     Route: 065
  3. CARDURA [Concomitant]
     Dosage: 8MG TWICE PER DAY
     Route: 065

REACTIONS (6)
  - BREAST ENLARGEMENT [None]
  - BREAST MASS [None]
  - BREAST PAIN [None]
  - BREAST TENDERNESS [None]
  - LIBIDO DECREASED [None]
  - UNEVALUABLE EVENT [None]
